FAERS Safety Report 25045792 (Version 1)
Quarter: 2025Q1

REPORT INFORMATION
  Report Type: Spontaneous
  Country: US (occurrence: None)
  Receive Date: 20250305
  Receipt Date: 20250305
  Transmission Date: 20250409
  Serious: Yes (Other)
  Sender: FDA-CTU
  Company Number: None

PATIENT
  Age: 25 Year
  Sex: Male
  Weight: 85.95 kg

DRUGS (3)
  1. ROCEPHIN [Suspect]
     Active Substance: CEFTRIAXONE SODIUM
     Indication: Bronchitis
     Dates: start: 20250304, end: 20250304
  2. Crafate [Concomitant]
  3. PROTONIX [Concomitant]
     Active Substance: PANTOPRAZOLE SODIUM

REACTIONS (5)
  - Anaphylactic reaction [None]
  - Swelling [None]
  - Pruritus [None]
  - Urticaria [None]
  - Heart rate increased [None]

NARRATIVE: CASE EVENT DATE: 20250304
